FAERS Safety Report 4991737-4 (Version None)
Quarter: 2006Q2

REPORT INFORMATION
  Report Type: 
  Country: None (occurrence: None)
  Receive Date: 20060502
  Receipt Date: 20060421
  Transmission Date: 20061013
  Serious: Yes (Hospitalization, Other)
  Sender: FDA-Public Use
  Company Number: 223883

PATIENT
  Age: 32 Year
  Sex: Female

DRUGS (3)
  1. RAPTIVA [Suspect]
     Indication: PSORIASIS
     Dosage: 1 MG/KG, 1/WEEK, SUBCUTANEOUS
     Route: 058
     Dates: start: 20050701
  2. CYCLOSPORINE [Suspect]
     Indication: DRUG USE FOR UNKNOWN INDICATION
  3. PROMETHEZINE HCL [Concomitant]

REACTIONS (16)
  - ALANINE AMINOTRANSFERASE INCREASED [None]
  - BLOOD ALKALINE PHOSPHATASE INCREASED [None]
  - CHOLANGITIS [None]
  - CHOLESTASIS [None]
  - CONTRAINDICATION TO MEDICAL TREATMENT [None]
  - FLATULENCE [None]
  - GAMMA-GLUTAMYLTRANSFERASE INCREASED [None]
  - HYPERKERATOSIS [None]
  - INFECTION [None]
  - JAUNDICE [None]
  - PANCREATITIS CHRONIC [None]
  - PARAKERATOSIS [None]
  - PERIVASCULAR DERMATITIS [None]
  - PSORIASIS [None]
  - RASH [None]
  - RENAL IMPAIRMENT [None]
